FAERS Safety Report 13537108 (Version 3)
Quarter: 2017Q3

REPORT INFORMATION
  Report Type: Spontaneous
  Country: US (occurrence: US)
  Receive Date: 20170511
  Receipt Date: 20170811
  Transmission Date: 20171127
  Serious: Yes (Death, Other)
  Sender: FDA-Public Use
  Company Number: US-CELGENEUS-USA-20170503245

PATIENT
  Sex: Female
  Weight: 79 kg

DRUGS (1)
  1. REVLIMID [Suspect]
     Active Substance: LENALIDOMIDE
     Indication: PLASMA CELL MYELOMA
     Dosage: 25 MILLIGRAM
     Route: 048
     Dates: start: 201610

REACTIONS (6)
  - Tooth infection [Unknown]
  - Ageusia [Unknown]
  - Fluid retention [Unknown]
  - Weight decreased [Unknown]
  - Decreased appetite [Unknown]
  - Hepatocellular carcinoma [Fatal]
